FAERS Safety Report 7479016-7 (Version None)
Quarter: 2011Q2

REPORT INFORMATION
  Report Type: 
  Country: None (occurrence: None)
  Receive Date: 20110511
  Receipt Date: 20110511
  Transmission Date: 20111010
  Serious: Yes (Hospitalization)
  Sender: FDA-Public Use
  Company Number: None

PATIENT
  Sex: Female

DRUGS (3)
  1. DIOVAN [Concomitant]
  2. WARFARIN SODIUM [Concomitant]
  3. PRADAXA [Suspect]
     Indication: ANTICOAGULANT THERAPY
     Dosage: 150MG BID ORAL
     Route: 048
     Dates: start: 20110425, end: 20110430

REACTIONS (3)
  - MIDDLE INSOMNIA [None]
  - RASH GENERALISED [None]
  - URTICARIA [None]
